FAERS Safety Report 5167989-7 (Version None)
Quarter: 2006Q4

REPORT INFORMATION
  Report Type: 
  Country: None (occurrence: None)
  Receive Date: 20061208
  Receipt Date: 20060106
  Transmission Date: 20070319
  Serious: No
  Sender: FDA-Public Use
  Company Number: US-GLAXOSMITHKLINE-A0588165A

PATIENT
  Age: 66 Year
  Sex: Male

DRUGS (5)
  1. AVANDAMET [Suspect]
     Route: 048
  2. AVANDIA [Suspect]
     Dosage: 4MG TWICE PER DAY
     Route: 048
  3. COREG [Concomitant]
  4. GLIMEPIRIDE [Concomitant]
  5. MICARDIS [Concomitant]

REACTIONS (3)
  - ARTHRITIS [None]
  - NAUSEA [None]
  - VISION BLURRED [None]
